FAERS Safety Report 24258712 (Version 2)
Quarter: 2024Q3

REPORT INFORMATION
  Report Type: Spontaneous
  Country: US (occurrence: US)
  Receive Date: 20240828
  Receipt Date: 20240920
  Transmission Date: 20241017
  Serious: No
  Sender: PFIZER
  Company Number: US-PFIZER INC-202400243314

PATIENT
  Age: 71 Year
  Sex: Female
  Weight: 77.11 kg

DRUGS (21)
  1. PAXLOVID [Interacting]
     Active Substance: NIRMATRELVIR\RITONAVIR
     Indication: COVID-19 treatment
     Dosage: [NIRMATRELVIR 300 MG]/[RITONAVIR 100 MG]; 2X/DAY
     Route: 048
     Dates: start: 20240822, end: 20240823
  2. LEVOTHYROXINE [Concomitant]
     Active Substance: LEVOTHYROXINE\LEVOTHYROXINE SODIUM
     Indication: Hypothyroidism
     Dosage: 88 UG, 1X/DAY (MORNING)
  3. ESZOPICLONE [Concomitant]
     Active Substance: ESZOPICLONE
     Indication: Sleep disorder
     Dosage: 3 MILLIGRAM AND I TAKE THAT AT NIGHT
  4. DULOXETINE [Concomitant]
     Active Substance: DULOXETINE
     Indication: Depression
     Dosage: 60 MG, 1X/DAY (MORNING)
  5. VALSARTAN [Concomitant]
     Active Substance: VALSARTAN
     Indication: Blood pressure measurement
     Dosage: 40 MG, 1X/DAY (NIGHTLY)
  6. OMEPRAZOLE [Concomitant]
     Active Substance: OMEPRAZOLE
     Indication: Gastrooesophageal reflux disease
     Dosage: 40 MG, 1X/DAY (MORNING)
  7. FAMOTIDINE [Concomitant]
     Active Substance: FAMOTIDINE
     Indication: Gastrooesophageal reflux disease
     Dosage: 40 MG, 1X/DAY (NIGHTLY)
  8. FISH OIL [Concomitant]
     Active Substance: FISH OIL
     Dosage: 2000 IU, 1X/DAY (NIGHTLY)
  9. VITAMIN D3 [Concomitant]
     Active Substance: CHOLECALCIFEROL
     Dosage: 2000 IU, 1X/DAY (NIGHTLY)
  10. NATURE^S BOUNTY ACIDOPHILUS PROBIOTIC [Concomitant]
     Dosage: 20 BILION, 1X/DAY (NIGHTLY)
  11. TRUNATURE ADVANCED DIGESTIVE PROBIOTIC [Concomitant]
     Dosage: 10 BILION, 1X/DAY (MORNING)
  12. ZINC PICOLINATE [Concomitant]
     Active Substance: ZINC PICOLINATE
     Dosage: 50 MG, 1X/DAY (MORNING)
  13. VITAMIN C [Concomitant]
     Active Substance: ASCORBIC ACID
     Dosage: 1000 MG, 1X/DAY (NIGHTLY)
  14. CYANOCOBALAMIN\DEXPANTHENOL\NIACINAMIDE\PYRIDOXINE HYDROCHLORIDE\RIBOF [Concomitant]
     Active Substance: CYANOCOBALAMIN\DEXPANTHENOL\NIACINAMIDE\PYRIDOXINE HYDROCHLORIDE\RIBOFLAVIN 5^-PHOSPHATE SODIUM\THIA
     Dosage: UNK, 1X/DAY (MORNING)
  15. HAIR, SKIN + NAILS [BIOTIN] [Concomitant]
     Dosage: 3 DF, 1X/DAY (MORNING)
  16. OSTEO [CALCIUM] [Concomitant]
     Dosage: 4 DF, DAILY (MORNING/ NIGHTLY)
  17. METHYL FOLATE [CALCIUM LEVOMEFOLATE] [Concomitant]
     Dosage: 1000 UG, 1X/DAY (MORNINGS)
  18. CRANBERRY [Concomitant]
     Active Substance: CRANBERRY
     Dosage: 500 MG, 1X/DAY (MORNING)
  19. DIETARY SUPPLEMENT [Concomitant]
     Active Substance: DIETARY SUPPLEMENT
     Dosage: 2 DF, 1X/DAY (MORNING)
  20. TYLENOL [Concomitant]
     Active Substance: ACETAMINOPHEN
     Indication: Pyrexia
     Dosage: UNK
  21. NAPROXEN [Concomitant]
     Active Substance: NAPROXEN
     Indication: Pain

REACTIONS (3)
  - Diarrhoea [Recovering/Resolving]
  - Vomiting [Recovering/Resolving]
  - Drug interaction [Recovering/Resolving]

NARRATIVE: CASE EVENT DATE: 20240822
